FAERS Safety Report 7129194-4 (Version None)
Quarter: 2010Q4

REPORT INFORMATION
  Report Type: 
  Country: None (occurrence: None)
  Receive Date: 20101130
  Receipt Date: 20101123
  Transmission Date: 20110411
  Serious: Yes (Congenital Anomaly)
  Sender: FDA-Public Use
  Company Number: IL-MERCK-1011ISR00024B1

PATIENT
  Age: 0 Day

DRUGS (1)
  1. PROPECIA [Suspect]
     Dosage: PARENTAL EXPOSURE
     Route: 065
     Dates: start: 20100817

REACTIONS (1)
  - KIDNEY ENLARGEMENT [None]
